FAERS Safety Report 7589879-2 (Version None)
Quarter: 2011Q3

REPORT INFORMATION
  Report Type: 
  Country: None (occurrence: None)
  Receive Date: 20110705
  Receipt Date: 20110624
  Transmission Date: 20111222
  Serious: Yes (Hospitalization, Disabling)
  Sender: FDA-Public Use
  Company Number: US-MERCK-1103USA00267

PATIENT
  Age: 57 Year
  Sex: Female
  Weight: 75 kg

DRUGS (6)
  1. FOSAMAX [Suspect]
     Indication: OSTEOPENIA
     Route: 048
     Dates: start: 20050801
  2. VITAMINS (UNSPECIFIED) [Concomitant]
     Route: 065
  3. VITAMIN E [Concomitant]
     Route: 065
  4. ALENDRONATE SODIUM [Suspect]
     Indication: OSTEOPENIA
     Route: 048
     Dates: start: 20080219, end: 20091001
  5. FOSAMAX [Suspect]
     Indication: OSTEOPOROSIS
     Route: 048
     Dates: start: 20080911
  6. CALCIUM (UNSPECIFIED) [Concomitant]
     Route: 065

REACTIONS (26)
  - TELANGIECTASIA [None]
  - VULVA CYST [None]
  - HYPERLIPIDAEMIA [None]
  - DRUG INTOLERANCE [None]
  - POST PROCEDURAL HAEMORRHAGE [None]
  - GASTROOESOPHAGEAL REFLUX DISEASE [None]
  - NASAL DISORDER [None]
  - LOCALISED INFECTION [None]
  - KNEE DEFORMITY [None]
  - INCORRECT DOSE ADMINISTERED [None]
  - FOREIGN BODY [None]
  - FEMUR FRACTURE [None]
  - PAIN IN EXTREMITY [None]
  - ASTHENIA [None]
  - FOOT DEFORMITY [None]
  - SKIN LESION [None]
  - FALL [None]
  - SACROILIITIS [None]
  - LYMPHADENOPATHY [None]
  - ADVERSE DRUG REACTION [None]
  - BLOOD CHOLESTEROL INCREASED [None]
  - MUSCLE STRAIN [None]
  - MOUTH ULCERATION [None]
  - OEDEMA PERIPHERAL [None]
  - VIRAL PHARYNGITIS [None]
  - PRURITUS [None]
